FAERS Safety Report 24462376 (Version 1)
Quarter: 2024Q4

REPORT INFORMATION
  Report Type: Spontaneous
  Country: TR (occurrence: TR)
  Receive Date: 20241018
  Receipt Date: 20241018
  Transmission Date: 20250115
  Serious: Yes (Other)
  Sender: MACLEODS
  Company Number: TR-MACLEODS PHARMA-MAC2024049836

PATIENT

DRUGS (4)
  1. CLOPIDOGREL [Suspect]
     Active Substance: CLOPIDOGREL BISULFATE
     Indication: Product used for unknown indication
     Route: 048
  2. ASPIRIN [Suspect]
     Active Substance: ASPIRIN
     Indication: Product used for unknown indication
     Route: 048
  3. TICAGRELOR [Concomitant]
     Active Substance: TICAGRELOR
     Indication: Product used for unknown indication
     Dosage: 180-MG LOADING DOSE AND MAINTENANCE DOSE OF 90 MG BID
     Route: 065
  4. TICAGRELOR [Concomitant]
     Active Substance: TICAGRELOR
     Dosage: 180-MG LOADING DOSE AND MAINTENANCE DOSE OF 90 MG BID
     Route: 065

REACTIONS (3)
  - Vascular stent thrombosis [Unknown]
  - Drug resistance [Unknown]
  - Paresis [Unknown]
